FAERS Safety Report 9295212 (Version 1)
Quarter: 2013Q1

REPORT INFORMATION
  Report Type: Spontaneous
  Country: US (occurrence: None)
  Receive Date: 20121227
  Receipt Date: 20121227
  Transmission Date: 20140127
  Serious: No
  Sender: FDA-Public Use
  Company Number: PHEH2012US021457

PATIENT
  Age: 11 Year
  Sex: Female

DRUGS (6)
  1. AFINITOR [Suspect]
     Indication: TUBEROUS SCLEROSIS
     Route: 048
     Dates: start: 20121022
  2. AFINITOR [Suspect]
     Route: 048
     Dates: start: 20121022
  3. FELBATOL (FELBAMATE) [Concomitant]
  4. RISPERDON (RISPERIDONE) [Concomitant]
  5. MELATONIN (MELATONIN) [Concomitant]
  6. DAYTRAMA (METHYPHENIDATE) [Concomitant]

REACTIONS (2)
  - Nasopharyngitis [None]
  - Cough [None]
